FAERS Safety Report 4917169-2 (Version None)
Quarter: 2006Q1

REPORT INFORMATION
  Report Type: 
  Country: None (occurrence: None)
  Receive Date: 20060221
  Receipt Date: 20060209
  Transmission Date: 20060701
  Serious: Yes (Death)
  Sender: FDA-Public Use
  Company Number: US-AVENTIS-200610908EU

PATIENT
  Age: 20 Year
  Sex: Male

DRUGS (3)
  1. DESIPRAMINE HCL [Suspect]
     Indication: DRUG USE FOR UNKNOWN INDICATION
     Dosage: DOSE: UNKNOWN DOSE
  2. IMIPRAMINE [Suspect]
     Indication: DRUG USE FOR UNKNOWN INDICATION
     Dosage: DOSE: UNKNOWN DOSE
  3. QUETIAPINE [Concomitant]
     Indication: DRUG USE FOR UNKNOWN INDICATION

REACTIONS (3)
  - CARBON MONOXIDE POISONING [None]
  - COMPLETED SUICIDE [None]
  - TOXICOLOGIC TEST ABNORMAL [None]
